FAERS Safety Report 22161982 (Version 1)
Quarter: 2023Q1

REPORT INFORMATION
  Report Type: Report from Study
  Country: ES (occurrence: ES)
  Receive Date: 20230331
  Receipt Date: 20230331
  Transmission Date: 20230418
  Serious: Yes (Hospitalization)
  Sender: FDA-Public Use
  Company Number: ES-JNJFOC-20221019011

PATIENT
  Age: 60 Year
  Sex: Male
  Weight: 90.3 kg

DRUGS (3)
  1. CILTACABTAGENE AUTOLEUCEL [Suspect]
     Active Substance: CILTACABTAGENE AUTOLEUCEL
     Indication: Plasma cell myeloma
     Dosage: 0.75 X10^6 CAR-POSITIVE VIABLE T-CELLS/KG
     Route: 042
     Dates: start: 20220606, end: 20220606
  2. FLUDARABINE [Concomitant]
     Active Substance: FLUDARABINE PHOSPHATE
     Indication: Plasma cell myeloma
     Route: 042
     Dates: start: 20220601
  3. CYCLOPHOSPHAMIDE [Concomitant]
     Active Substance: CYCLOPHOSPHAMIDE
     Indication: Plasma cell myeloma
     Route: 042
     Dates: start: 20220601

REACTIONS (1)
  - Pneumonia viral [Recovered/Resolved]

NARRATIVE: CASE EVENT DATE: 20221008
